FAERS Safety Report 20678190 (Version 1)
Quarter: 2022Q2

REPORT INFORMATION
  Report Type: Spontaneous
  Country: US (occurrence: None)
  Receive Date: 20220404
  Receipt Date: 20220404
  Transmission Date: 20220721
  Serious: No
  Sender: FDA-Public Use
  Company Number: None

PATIENT
  Sex: Female

DRUGS (9)
  1. XELJANZ [Suspect]
     Active Substance: TOFACITINIB CITRATE
     Indication: Rheumatoid arthritis
     Dosage: FREQUENCY : TWICE A DAY;?
     Route: 048
     Dates: start: 20170131
  2. IRON [Concomitant]
     Active Substance: IRON
  3. CALCIUM [Concomitant]
     Active Substance: CALCIUM
  4. BREO ELLIPTA [Concomitant]
     Active Substance: FLUTICASONE FUROATE\VILANTEROL TRIFENATATE
  5. VITAMIN D [Concomitant]
     Active Substance: VITAMIN D NOS
  6. SINGULAIR [Concomitant]
     Active Substance: MONTELUKAST SODIUM
  7. BUSPIRONE HCL [Concomitant]
     Active Substance: BUSPIRONE HYDROCHLORIDE
  8. CLARITIN [Concomitant]
     Active Substance: LORATADINE
  9. NEXIUM [Concomitant]
     Active Substance: ESOMEPRAZOLE MAGNESIUM

REACTIONS (1)
  - Pain [None]
